FAERS Safety Report 7535626-X (Version None)
Quarter: 2011Q2

REPORT INFORMATION
  Report Type: 
  Country: None (occurrence: None)
  Receive Date: 20110609
  Receipt Date: 20110523
  Transmission Date: 20111010
  Serious: Yes (Hospitalization, Other)
  Sender: FDA-Public Use
  Company Number: US-BAYER-2010-006630

PATIENT
  Age: 28 Year
  Sex: Female
  Weight: 43 kg

DRUGS (18)
  1. YASMIN [Suspect]
     Indication: CONTRACEPTION
     Dosage: UNK
     Route: 048
  2. PRILOSEC [Concomitant]
     Indication: APHTHOUS STOMATITIS
  3. IMODIUM [Concomitant]
     Indication: DIARRHOEA
     Dosage: UNK UNK, PRN
  4. PRILOSEC [Concomitant]
     Indication: DYSPEPSIA
  5. ATIVAN [Concomitant]
     Indication: ANXIETY
     Dosage: 1 MG, UNK
  6. LOMOTIL [DIPHENOXYLATE HYDROCHLORIDE] [Concomitant]
  7. LOMOTIL [DIPHENOXYLATE HYDROCHLORIDE] [Concomitant]
  8. PHENERGAN [Concomitant]
     Indication: NAUSEA
     Dosage: 25 MG, UNK
  9. YAZ [Suspect]
     Indication: CONTRACEPTION
     Dosage: UNK
     Route: 048
  10. SIMETHICONE [Concomitant]
     Indication: ABDOMINAL DISTENSION
     Dosage: UNK UNK, PRN
  11. UNKNOWN [Concomitant]
     Indication: ULCER
  12. ADVIL LIQUI-GELS [Concomitant]
     Indication: HEADACHE
  13. BENADRYL [Concomitant]
     Indication: MULTIPLE ALLERGIES
     Dosage: UNK UNK, PRN
  14. UNKNOWN [Concomitant]
     Indication: DYSPEPSIA
  15. ZOFRAN [Concomitant]
  16. ACETAMINOPHEN [Concomitant]
     Indication: HEADACHE
  17. ZANTAC [Concomitant]
  18. EFFEXOR [Concomitant]

REACTIONS (8)
  - ULCER [None]
  - ANXIETY [None]
  - GALLBLADDER DISORDER [None]
  - CHOLECYSTITIS CHRONIC [None]
  - PAIN [None]
  - FIBROMYALGIA [None]
  - NEPHROLITHIASIS [None]
  - GASTRIC DISORDER [None]
